FAERS Safety Report 8695158 (Version 2)
Quarter: 2013Q4

REPORT INFORMATION
  Report Type: Spontaneous
  Country: US (occurrence: US)
  Receive Date: 20120731
  Receipt Date: 20131107
  Transmission Date: 20140711
  Serious: Yes (Life-Threatening, Hospitalization)
  Sender: FDA-Public Use
  Company Number: US-009507513-1207USA009844

PATIENT
  Age: 72 Year
  Sex: 0

DRUGS (3)
  1. ZOCOR [Suspect]
     Route: 048
  2. AMLODIPINE [Suspect]
  3. PERINDOPRIL [Suspect]

REACTIONS (3)
  - Thrombocytopenia [Unknown]
  - Neutrophil count increased [Unknown]
  - White blood cell count increased [Unknown]
